FAERS Safety Report 21634966 (Version 1)
Quarter: 2022Q4

REPORT INFORMATION
  Report Type: Report from Study
  Country: US (occurrence: US)
  Receive Date: 20221123
  Receipt Date: 20221123
  Transmission Date: 20230113
  Serious: No
  Sender: FDA-Public Use
  Company Number: US-ABBVIE-22K-163-4517526-00

PATIENT
  Sex: Female

DRUGS (2)
  1. SKYRIZI [Suspect]
     Active Substance: RISANKIZUMAB-RZAA
     Indication: Psoriasis
     Dosage: TIME INTERVAL: TOTAL: FORM STRENGTH- 150MG/ML?WEEK 0
     Route: 058
     Dates: start: 20220810, end: 20220818
  2. SKYRIZI [Suspect]
     Active Substance: RISANKIZUMAB-RZAA
     Indication: Psoriasis
     Dosage: TIME INTERVAL: TOTAL: FORM STRENGTH- 150MG/ML?WEEK 4
     Route: 058
     Dates: start: 20220909, end: 20220909

REACTIONS (8)
  - Feeling abnormal [Unknown]
  - Fatigue [Recovered/Resolved]
  - Fungal foot infection [Unknown]
  - Pruritus [Unknown]
  - Skin burning sensation [Unknown]
  - Headache [Recovered/Resolved]
  - Pain of skin [Unknown]
  - Erythema [Unknown]

NARRATIVE: CASE EVENT DATE: 20220101
